FAERS Safety Report 22280329 (Version 1)
Quarter: 2023Q2

REPORT INFORMATION
  Report Type: Spontaneous
  Country: BR (occurrence: None)
  Receive Date: 20230503
  Receipt Date: 20230503
  Transmission Date: 20230722
  Serious: Yes (Other)
  Sender: FDA-Public Use
  Company Number: 2023A099956

PATIENT
  Age: 65 Year
  Sex: Female

DRUGS (11)
  1. DAPAGLIFLOZIN [Suspect]
     Active Substance: DAPAGLIFLOZIN
     Indication: Type 2 diabetes mellitus
     Route: 048
  2. CRESTOR [Suspect]
     Active Substance: ROSUVASTATIN CALCIUM
     Route: 048
  3. DAPAGLIFLOZIN [Suspect]
     Active Substance: DAPAGLIFLOZIN
     Dosage: ONCE A DAY
     Route: 048
     Dates: start: 202212
  4. BROMAZEPAM [Concomitant]
     Active Substance: BROMAZEPAM
     Dosage: ONCE
  5. OMEPRAZOLE [Concomitant]
     Active Substance: OMEPRAZOLE
  6. ASPIRIN\DIHYDROXYALUMINUM AMINOACETATE ANHYDROUS\MAGNESIUM CARBONATE [Concomitant]
     Active Substance: ASPIRIN\DIHYDROXYALUMINUM AMINOACETATE ANHYDROUS\MAGNESIUM CARBONATE
     Dosage: 1 TABLET
  7. VITAMIN AED 3 [Concomitant]
  8. JANUVIA [Concomitant]
     Active Substance: SITAGLIPTIN PHOSPHATE
     Dosage: 1 TABLET
  9. DOSEMASTE [Concomitant]
     Dosage: FOR 90 DAYS
  10. ZETIA [Concomitant]
     Active Substance: EZETIMIBE
     Dosage: 1 TABLET
  11. METFORMIN HYDROCHLORIDE [Concomitant]
     Active Substance: METFORMIN HYDROCHLORIDE

REACTIONS (17)
  - Thyroid cancer [Not Recovered/Not Resolved]
  - Breast cancer [Not Recovered/Not Resolved]
  - Skin cancer [Not Recovered/Not Resolved]
  - Thrombosis [Not Recovered/Not Resolved]
  - Type 2 diabetes mellitus [Not Recovered/Not Resolved]
  - Tongue injury [Recovered/Resolved]
  - Oropharyngeal discomfort [Recovered/Resolved]
  - Dysgeusia [Recovered/Resolved]
  - Dizziness [Recovered/Resolved]
  - Decreased appetite [Recovered/Resolved]
  - Abdominal distension [Recovered/Resolved]
  - Nausea [Recovered/Resolved]
  - Wound [Recovered/Resolved]
  - Vitamin B12 decreased [Unknown]
  - Poisoning [Recovered/Resolved]
  - Blood pressure increased [Not Recovered/Not Resolved]
  - Intentional product misuse [Unknown]

NARRATIVE: CASE EVENT DATE: 20090101
